FAERS Safety Report 12125640 (Version 2)
Quarter: 2016Q1

REPORT INFORMATION
  Report Type: Report from Study
  Country: DE (occurrence: DE)
  Receive Date: 20160229
  Receipt Date: 20160316
  Transmission Date: 20160526
  Serious: Yes (Hospitalization, Other)
  Sender: FDA-Public Use
  Company Number: DE-ABBVIE-16K-062-1558117-00

PATIENT
  Age: 51 Year
  Sex: Male

DRUGS (4)
  1. METHOTREXATE [Concomitant]
     Active Substance: METHOTREXATE
     Indication: PRODUCT USED FOR UNKNOWN INDICATION
  2. HUMIRA [Suspect]
     Active Substance: ADALIMUMAB
     Route: 058
     Dates: start: 20160306
  3. HUMIRA [Suspect]
     Active Substance: ADALIMUMAB
     Indication: COLITIS ULCERATIVE
     Route: 058
     Dates: start: 20151127, end: 20160212
  4. OMEPRAZOLE. [Concomitant]
     Active Substance: OMEPRAZOLE
     Indication: PRODUCT USED FOR UNKNOWN INDICATION

REACTIONS (7)
  - Renal pain [Recovering/Resolving]
  - Abdominal pain lower [Recovering/Resolving]
  - Pyelonephritis [Not Recovered/Not Resolved]
  - Urosepsis [Recovering/Resolving]
  - Urinary retention [Recovering/Resolving]
  - Benign prostatic hyperplasia [Recovering/Resolving]
  - Prostatitis [Recovering/Resolving]

NARRATIVE: CASE EVENT DATE: 20160205
